FAERS Safety Report 12489815 (Version 1)
Quarter: 2016Q2

REPORT INFORMATION
  Report Type: Spontaneous
  Country: DE (occurrence: DE)
  Receive Date: 20160622
  Receipt Date: 20160622
  Transmission Date: 20160815
  Serious: Yes (Death, Life-Threatening)
  Sender: FDA-Public Use
  Company Number: DE-TEVA-668130GER

PATIENT
  Age: 43 Year
  Sex: Male
  Weight: 133 kg

DRUGS (8)
  1. BENPERIDOL [Interacting]
     Active Substance: BENPERIDOL
     Route: 048
  2. AKINETON [Concomitant]
     Active Substance: BIPERIDEN HYDROCHLORIDE
     Route: 048
  3. TAVOR EXPIDET [Interacting]
     Active Substance: LORAZEPAM
     Dosage: 1-3 MG AS REQUIRED
     Route: 048
  4. DIAZEPAM. [Suspect]
     Active Substance: DIAZEPAM
     Route: 048
  5. ABILIFY [Interacting]
     Active Substance: ARIPIPRAZOLE
     Route: 048
  6. OLANZAPINE ARISTO [Interacting]
     Active Substance: OLANZAPINE
     Dosage: 5-10 MG
     Route: 048
  7. VALPROAT [Interacting]
     Active Substance: VALPROATE SODIUM
     Route: 048
  8. GASTROZEPIN [Concomitant]
     Active Substance: PIRENZEPINE HYDROCHLORIDE
     Route: 048

REACTIONS (2)
  - Sudden death [Fatal]
  - Drug interaction [Unknown]

NARRATIVE: CASE EVENT DATE: 20150616
